FAERS Safety Report 7272844-2 (Version None)
Quarter: 2010Q4

REPORT INFORMATION
  Report Type: 
  Country: None (occurrence: None)
  Receive Date: 20101201
  Receipt Date: 20100609
  Transmission Date: 20110411
  Serious: Yes (Other)
  Sender: FDA-Public Use
  Company Number: 305601

PATIENT
  Age: 46 Year
  Sex: Male
  Weight: 88.4 kg

DRUGS (5)
  1. NOVOLOG MIX 70/30 [Suspect]
     Indication: TYPE 2 DIABETES MELLITUS
     Dosage: 70 IU, QD (40 IU AM, 30 IU WITH DINNER), SUBCUTANEOUS
     Route: 058
     Dates: start: 20100101
  2. LISINOPRIL [Concomitant]
  3. LOVASTATIN [Concomitant]
  4. AMBIEN [Concomitant]
  5. PERCOCET /0001/ (OXYCODONE HYDROCHLORIDE, OXYCODONE TEREPHTHALATE, PAR [Concomitant]

REACTIONS (3)
  - BLOOD GLUCOSE DECREASED [None]
  - HYPOGLYCAEMIC UNCONSCIOUSNESS [None]
  - INCORRECT PRODUCT STORAGE [None]
